FAERS Safety Report 10099458 (Version 1)
Quarter: 2014Q2

REPORT INFORMATION
  Report Type: Spontaneous
  Country: NL (occurrence: NL)
  Receive Date: 20140423
  Receipt Date: 20140423
  Transmission Date: 20141212
  Serious: Yes (Other)
  Sender: FDA-Public Use
  Company Number: NL-UCBSA-118889

PATIENT
  Sex: Male

DRUGS (1)
  1. METHYLPHENIDATE HYDROCHLORIDE [Suspect]
     Route: 048

REACTIONS (11)
  - Hypoaesthesia [Unknown]
  - Drug abuse [Unknown]
  - Fear [Unknown]
  - Dissociation [Unknown]
  - Psychiatric symptom [Unknown]
  - Sleep disorder [Unknown]
  - Restlessness [Unknown]
  - Fatigue [Unknown]
  - Abnormal behaviour [Unknown]
  - Poor quality sleep [Unknown]
  - Hyperhidrosis [Unknown]
